FAERS Safety Report 24764254 (Version 1)
Quarter: 2024Q4

REPORT INFORMATION
  Report Type: Report from Study
  Country: CN (occurrence: CN)
  Receive Date: 20241223
  Receipt Date: 20241223
  Transmission Date: 20250115
  Serious: Yes (Other)
  Sender: GILEAD
  Company Number: CN-GILEAD-2024-0697123

PATIENT
  Age: 46 Year
  Sex: Female

DRUGS (2)
  1. SACITUZUMAB GOVITECAN-HZIY [Suspect]
     Active Substance: SACITUZUMAB GOVITECAN-HZIY
     Indication: Breast cancer
     Dosage: 540 MG, Q2WK [C1-C2]
     Route: 041
     Dates: start: 20241030, end: 20241113
  2. SACITUZUMAB GOVITECAN-HZIY [Suspect]
     Active Substance: SACITUZUMAB GOVITECAN-HZIY
     Dosage: 540 MG, DAY 1, C4 REGIMEN WAS GIVEN
     Route: 041
     Dates: start: 20241211

REACTIONS (6)
  - Hepatic failure [Unknown]
  - Neutrophil count decreased [Unknown]
  - Lymphocyte count decreased [Unknown]
  - Red cell distribution width increased [Unknown]
  - Blood chloride increased [Unknown]
  - Product use issue [Unknown]

NARRATIVE: CASE EVENT DATE: 20241030
